FAERS Safety Report 5601401-6 (Version None)
Quarter: 2007Q4

REPORT INFORMATION
  Report Type: 
  Country: None (occurrence: None)
  Receive Date: 20071226
  Receipt Date: 20070625
  Transmission Date: 20080405
  Serious: Yes (Life-Threatening)
  Sender: FDA-Public Use
  Company Number: 234899

PATIENT
  Age: 25 Year
  Sex: Female
  Weight: 115.6 kg

DRUGS (4)
  1. RAPTIVA [Suspect]
     Indication: PSORIASIS
     Dosage: 110 MG, 1/WEEK, SUBCUTANEOUS
     Route: 058
     Dates: start: 20050721, end: 20061212
  2. PREDNISONE TAB [Concomitant]
  3. MUSCLE RELAXANT (NAME UNK) (MUSCLE RELAXANT NOS) [Concomitant]
  4. PAIN MEDICATION (ANALGESIC NOS) [Concomitant]

REACTIONS (1)
  - RED BLOOD CELL COUNT DECREASED [None]
